FAERS Safety Report 5599934-4 (Version None)
Quarter: 2008Q1

REPORT INFORMATION
  Report Type: 
  Country: None (occurrence: None)
  Receive Date: 20080123
  Receipt Date: 20080108
  Transmission Date: 20080703
  Serious: Yes (Other)
  Sender: FDA-Public Use
  Company Number: JP-GENENTECH-251773

PATIENT
  Sex: Female
  Weight: 60 kg

DRUGS (8)
  1. HERCEPTIN [Suspect]
     Indication: BREAST CANCER METASTATIC
     Dosage: 240 MG, QD
     Route: 041
     Dates: start: 20070423, end: 20071016
  2. TAXOL [Suspect]
     Indication: BREAST CANCER METASTATIC
     Dosage: 125 MG, QD
     Route: 041
     Dates: start: 20070501
  3. ZANTAC [Concomitant]
     Indication: DRUG USE FOR UNKNOWN INDICATION
     Dates: start: 20070501
  4. DECADRON [Concomitant]
     Indication: DRUG USE FOR UNKNOWN INDICATION
     Dates: start: 20070501
  5. ZOFRAN [Concomitant]
     Indication: DRUG USE FOR UNKNOWN INDICATION
     Dates: start: 20070501
  6. VENA [Concomitant]
     Indication: DRUG USE FOR UNKNOWN INDICATION
     Dates: start: 20070501
  7. GENERIC COMPONENTS UNKNOWN [Concomitant]
     Indication: DRUG USE FOR UNKNOWN INDICATION
  8. BOTANICALS [Concomitant]
     Indication: DRUG USE FOR UNKNOWN INDICATION

REACTIONS (1)
  - INTERSTITIAL LUNG DISEASE [None]
